FAERS Safety Report 12468407 (Version 2)
Quarter: 2016Q3

REPORT INFORMATION
  Report Type: Spontaneous
  Country: None (occurrence: US)
  Receive Date: 20160615
  Receipt Date: 20160711
  Transmission Date: 20161109
  Serious: No
  Sender: FDA-Public Use
  Company Number: US-MEDAC PHARMA, INC.-1053823

PATIENT
  Age: 77 Year
  Sex: Female
  Weight: 56.82 kg

DRUGS (28)
  1. HYALURONIC ACID [Concomitant]
     Active Substance: HYALURONIC ACID
  2. RETIN-A [Concomitant]
     Active Substance: TRETINOIN
     Route: 061
  3. LORATADINE. [Concomitant]
     Active Substance: LORATADINE
  4. CYMBALTA [Concomitant]
     Active Substance: DULOXETINE HYDROCHLORIDE
  5. HYDROXYZINE [Concomitant]
     Active Substance: HYDROXYZINE\HYDROXYZINE HYDROCHLORIDE
  6. MUPIROCIN. [Concomitant]
     Active Substance: MUPIROCIN
     Route: 061
  7. HUMIRA [Suspect]
     Active Substance: ADALIMUMAB
  8. ALPRAZOLAM. [Concomitant]
     Active Substance: ALPRAZOLAM
  9. ESTRACE [Concomitant]
     Active Substance: ESTRADIOL
  10. OXYCODONE HYDROCHLORIDE. [Concomitant]
     Active Substance: OXYCODONE HYDROCHLORIDE
  11. ALTACE [Concomitant]
     Active Substance: RAMIPRIL
  12. BI-EST PLUS PROGESTERONE 1.6/80 MG [Concomitant]
  13. NIACIN. [Concomitant]
     Active Substance: NIACIN
  14. KETOCONAZOLE. [Concomitant]
     Active Substance: KETOCONAZOLE
  15. BOTOX [Concomitant]
     Active Substance: ONABOTULINUMTOXINA
  16. SIMVASTATIN. [Concomitant]
     Active Substance: SIMVASTATIN
  17. RASUVO [Suspect]
     Active Substance: METHOTREXATE SODIUM
     Indication: ARTHRITIS
  18. FOLIC ACID. [Concomitant]
     Active Substance: FOLIC ACID
  19. TRIAMCINOLONE ACETONIDE. [Concomitant]
     Active Substance: TRIAMCINOLONE ACETONIDE
  20. POTASSIUM [Concomitant]
     Active Substance: POTASSIUM
  21. LYRICA [Concomitant]
     Active Substance: PREGABALIN
  22. CALCIUM PLUS D [Concomitant]
     Active Substance: CALCIUM\VITAMIN D
  23. TART CHERRY [Concomitant]
  24. VOLTAREN [Concomitant]
     Active Substance: DICLOFENAC SODIUM
  25. MICONAZOLE. [Concomitant]
     Active Substance: MICONAZOLE
  26. METHOCARBAMOL. [Concomitant]
     Active Substance: METHOCARBAMOL
  27. ZOLPIDEM [Concomitant]
     Active Substance: ZOLPIDEM\ZOLPIDEM TARTRATE
  28. BETAINE HCL AND PEPSIN 1.04 G/40 MG [Concomitant]

REACTIONS (9)
  - Decreased appetite [Unknown]
  - Dizziness [Unknown]
  - Drug ineffective [Unknown]
  - Arthritis [Unknown]
  - Swelling [Unknown]
  - Headache [Unknown]
  - Abdominal discomfort [Unknown]
  - Nausea [Unknown]
  - Pain [Unknown]
